FAERS Safety Report 15983690 (Version 1)
Quarter: 2019Q1

REPORT INFORMATION
  Report Type: Other
  Country: ES (occurrence: ES)
  Receive Date: 20190220
  Receipt Date: 20190220
  Transmission Date: 20190418
  Serious: Yes (Other)
  Sender: FDA-Public Use
  Company Number: ES-APOTEX-2019AP007914

PATIENT
  Age: 58 Year
  Sex: Male
  Weight: 105 kg

DRUGS (1)
  1. HYDROCHLOROTHIAZIDE. [Suspect]
     Active Substance: HYDROCHLOROTHIAZIDE
     Indication: HYPERTENSION
     Dosage: 50 MG, UNK
     Route: 048
     Dates: start: 20131023, end: 20181203

REACTIONS (1)
  - Actinic keratosis [Recovering/Resolving]

NARRATIVE: CASE EVENT DATE: 20140922
